FAERS Safety Report 9402771 (Version 1)
Quarter: 2013Q3

REPORT INFORMATION
  Report Type: Spontaneous
  Country: US (occurrence: None)
  Receive Date: 20130715
  Receipt Date: 20130715
  Transmission Date: 20140515
  Serious: Yes (Hospitalization)
  Sender: FDA-Public Use
  Company Number: None

PATIENT
  Age: 49 Year
  Sex: Female
  Weight: 68.04 kg

DRUGS (1)
  1. PROLIA [Suspect]
     Indication: OSTEOPOROSIS POSTMENOPAUSAL
     Dosage: FULL INJECTION, SQ
     Route: 058
     Dates: start: 20130422

REACTIONS (10)
  - Vertigo [None]
  - Pain in jaw [None]
  - Joint swelling [None]
  - Arthralgia [None]
  - Fatigue [None]
  - Hypoaesthesia oral [None]
  - Hypoaesthesia [None]
  - Chest discomfort [None]
  - Cystitis [None]
  - Abdominal pain lower [None]
